FAERS Safety Report 22386995 (Version 2)
Quarter: 2024Q2

REPORT INFORMATION
  Report Type: Spontaneous
  Country: PK (occurrence: PK)
  Receive Date: 20230531
  Receipt Date: 20240424
  Transmission Date: 20240716
  Serious: Yes (Life-Threatening, Hospitalization, Other)
  Sender: FDA-Public Use
  Company Number: PK-009507513-2305GBR009205

PATIENT
  Age: 39 Year
  Sex: Female

DRUGS (6)
  1. PEMBROLIZUMAB [Suspect]
     Active Substance: PEMBROLIZUMAB
     Indication: Non-small cell lung cancer stage IV
     Dosage: 2 MG/KG EVERY 3 WEEKS
     Route: 042
  2. INSULIN ASPART [Concomitant]
     Active Substance: INSULIN ASPART
  3. INSULIN GLARGINE [Concomitant]
     Active Substance: INSULIN GLARGINE
  4. OLMESARTAN [Concomitant]
     Active Substance: OLMESARTAN
  5. HYDROCHLOROTHIAZIDE [Concomitant]
     Active Substance: HYDROCHLOROTHIAZIDE
  6. LORATADINE [Concomitant]
     Active Substance: LORATADINE

REACTIONS (2)
  - Pancreatitis acute [Recovered/Resolved]
  - Hypertriglyceridaemia [Recovered/Resolved]
